FAERS Safety Report 4375983-9 (Version None)
Quarter: 2004Q2

REPORT INFORMATION
  Report Type: 
  Country: None (occurrence: None)
  Receive Date: 20040609
  Receipt Date: 20040609
  Transmission Date: 20050107
  Serious: Yes (Hospitalization)
  Sender: FDA-Public Use
  Company Number: None

PATIENT
  Age: 14 Year
  Sex: Male
  Weight: 63.4 kg

DRUGS (13)
  1. L-ASPARAGINASE [Suspect]
     Indication: NON-HODGKIN'S LYMPHOMA
     Dosage: 10, 600 UNITS ONE DOSE IM
     Route: 030
     Dates: start: 20040528, end: 20040528
  2. ZANTAC [Concomitant]
  3. GRANISETRON [Concomitant]
  4. PREDNISONE [Concomitant]
  5. MIRALAX [Concomitant]
  6. SEPTRA [Concomitant]
  7. BENADRYL [Concomitant]
  8. CODEINE [Concomitant]
  9. PRILOSEC [Concomitant]
  10. CARAFATE [Concomitant]
  11. PHENERGAN [Concomitant]
  12. MORPHINE [Concomitant]
  13. MYLANTA [Concomitant]

REACTIONS (2)
  - ILEUS [None]
  - NEUTROPENIC COLITIS [None]
